FAERS Safety Report 5102872-4 (Version None)
Quarter: 2006Q3

REPORT INFORMATION
  Report Type: 
  Country: None (occurrence: None)
  Receive Date: 20060907
  Receipt Date: 20060810
  Transmission Date: 20061208
  Serious: Yes (Hospitalization, Other)
  Sender: FDA-Public Use
  Company Number: 2006RR-03449

PATIENT
  Age: 13 Year
  Sex: Male

DRUGS (2)
  1. ISOTRETINOIN(ISOTRETINOIN) [Suspect]
     Indication: ACNE
     Dosage: SEE IMAGE
     Route: 048
  2. ISOTRETINOIN(ISOTRETINOIN) [Suspect]
     Indication: ACNE
     Dosage: SEE IMAGE
     Route: 048

REACTIONS (6)
  - CSF PROTEIN ABNORMAL [None]
  - EPISTAXIS [None]
  - GUILLAIN-BARRE SYNDROME [None]
  - HEADACHE [None]
  - LETHARGY [None]
  - PARESIS [None]
